FAERS Safety Report 9489605 (Version 2)
Quarter: 2013Q3

REPORT INFORMATION
  Report Type: Spontaneous
  Country: US (occurrence: US)
  Receive Date: 20130829
  Receipt Date: 20130829
  Transmission Date: 20140515
  Serious: Yes (Hospitalization)
  Sender: FDA-Public Use
  Company Number: CHPA2013US013412

PATIENT
  Age: 67 Year
  Sex: Female

DRUGS (2)
  1. GAS-X CHEWABLE TABLETS UNKNOWN [Suspect]
     Indication: DYSPEPSIA
     Dosage: 1-2 DF; PRN
     Route: 048
  2. GAS-X [Suspect]
     Indication: DYSPEPSIA
     Dosage: 3-4 DF; PRN

REACTIONS (5)
  - Oedema [Recovered/Resolved]
  - Sinus disorder [Recovered/Resolved]
  - Off label use [Unknown]
  - Maternal exposure during pregnancy [Unknown]
  - Drug ineffective for unapproved indication [Unknown]
